FAERS Safety Report 5522850-0 (Version None)
Quarter: 2007Q4

REPORT INFORMATION
  Report Type: 
  Country: None (occurrence: None)
  Receive Date: 20071119
  Receipt Date: 20071119
  Transmission Date: 20080405
  Serious: Yes (Hospitalization, Other)
  Sender: FDA-Public Use
  Company Number: None

PATIENT
  Sex: Female
  Weight: 13.9 kg

DRUGS (2)
  1. GAMMAGARD [Suspect]
     Indication: KAWASAKI'S DISEASE
     Dosage: 27.8 GRAMS DAILY X 2 DAYS IV
     Route: 042
     Dates: start: 20071026, end: 20071027
  2. ASPIRIN [Concomitant]

REACTIONS (1)
  - ANAEMIA [None]
